FAERS Safety Report 15581742 (Version 12)
Quarter: 2019Q3

REPORT INFORMATION
  Report Type: Spontaneous
  Country: RO (occurrence: RO)
  Receive Date: 20181105
  Receipt Date: 20190910
  Transmission Date: 20191004
  Serious: Yes (Other)
  Sender: FDA-Public Use
  Company Number: RO-AUROBINDO-AUR-APL-2018-051425

PATIENT

DRUGS (9)
  1. ALFACALCIDOL [Suspect]
     Active Substance: ALFACALCIDOL
     Indication: RENAL IMPAIRMENT
     Dosage: 0.5 MILLIGRAM, ONCE A DAY
     Route: 065
  2. APIXABAN [Suspect]
     Active Substance: APIXABAN
     Indication: CEREBROVASCULAR ACCIDENT PROPHYLAXIS
     Dosage: 2.5 MILLIGRAM, TWO TIMES A DAY (2.5 MILLIGRAM, BID)
     Route: 065
  3. AMIODARONA [Suspect]
     Active Substance: AMIODARONE
     Indication: PRODUCT USED FOR UNKNOWN INDICATION
     Dosage: 200 MILLIGRAM, ONCE A DAY
     Route: 065
  4. APIXABAN [Suspect]
     Active Substance: APIXABAN
     Indication: MYOCARDIAL ISCHAEMIA
     Dosage: 2.5 MILLIGRAM, ONCE A DAY
     Route: 065
  5. LEVOTHYROXINE. [Suspect]
     Active Substance: LEVOTHYROXINE
     Indication: PRODUCT USED FOR UNKNOWN INDICATION
     Dosage: 100 MICROGRAM, ONCE A DAY
     Route: 065
  6. APIXABAN [Suspect]
     Active Substance: APIXABAN
     Indication: RENAL IMPAIRMENT
  7. AMLODIPINE [Suspect]
     Active Substance: AMLODIPINE BESYLATE
     Indication: PRODUCT USED FOR UNKNOWN INDICATION
     Dosage: 10 MILLIGRAM, ONCE A DAY
     Route: 065
  8. CARVEDILOL FILM-COATED TABLETS [Suspect]
     Active Substance: CARVEDILOL
     Indication: PRODUCT USED FOR UNKNOWN INDICATION
     Dosage: 12.5 MILLIGRAM, ONCE A DAY
     Route: 065
  9. ERGOCALCIFEROL. [Concomitant]
     Active Substance: ERGOCALCIFEROL
     Indication: PRODUCT USED FOR UNKNOWN INDICATION
     Dosage: 0.5 MG, PER DAY
     Route: 065

REACTIONS (14)
  - Fatigue [Unknown]
  - Diastolic dysfunction [Unknown]
  - Hypertension [Unknown]
  - Dyslipidaemia [Unknown]
  - Peripheral swelling [Recovered/Resolved]
  - Oedema peripheral [Recovered/Resolved]
  - Blood creatinine increased [Unknown]
  - Chronic kidney disease [Unknown]
  - Pleural thickening [Unknown]
  - Dyspnoea [Unknown]
  - No adverse event [Unknown]
  - Dehydration [Unknown]
  - Dyspnoea exertional [Unknown]
  - Oedema [Recovered/Resolved]
